FAERS Safety Report 13468947 (Version 3)
Quarter: 2017Q4

REPORT INFORMATION
  Report Type: Report from Study
  Country: US (occurrence: BR)
  Receive Date: 20170421
  Receipt Date: 20171009
  Transmission Date: 20180320
  Serious: Yes (Other)
  Sender: FDA-Public Use
  Company Number: US-SUNOVION-2017SUN001708

PATIENT
  Sex: Male
  Weight: 53 kg

DRUGS (5)
  1. AEROGOLD [Concomitant]
  2. CLENIL [Concomitant]
     Active Substance: BECLOMETHASONE DIPROPIONATE
     Dosage: 200 MG, UNK
  3. INDACATEROL AND GLYCOPYRROLATE [Suspect]
     Active Substance: GLYCOPYRROLATE\INDACATEROL MALEATE
     Indication: EMPHYSEMA
     Dosage: 1 DF, BID (PLACED 2 CAPSULES A DAY)
     Route: 065
     Dates: start: 2017
  4. INDACATEROL AND GLYCOPYRROLATE [Suspect]
     Active Substance: GLYCOPYRROLATE\INDACATEROL MALEATE
     Indication: ASTHMA
  5. INDACATEROL AND GLYCOPYRROLATE [Suspect]
     Active Substance: GLYCOPYRROLATE\INDACATEROL MALEATE
     Indication: CHRONIC OBSTRUCTIVE PULMONARY DISEASE
     Dosage: 1 DF , QD
     Route: 065

REACTIONS (10)
  - Fatigue [Not Recovered/Not Resolved]
  - Feeling abnormal [Unknown]
  - Heart rate increased [Unknown]
  - Dry throat [Unknown]
  - Drug prescribing error [Unknown]
  - Productive cough [Unknown]
  - Angina pectoris [Unknown]
  - Prostatic disorder [Unknown]
  - Pneumonia [Unknown]
  - Weight decreased [Unknown]
